FAERS Safety Report 21872590 (Version 6)
Quarter: 2023Q2

REPORT INFORMATION
  Report Type: Other
  Country: CN (occurrence: None)
  Receive Date: 20230117
  Receipt Date: 20230516
  Transmission Date: 20230722
  Serious: Yes (Hospitalization)
  Sender: FDA-Public Use
  Company Number: CN-ROCHE-3086690

PATIENT
  Age: 38 Year
  Sex: Female
  Weight: 64 kg

DRUGS (4)
  1. ALECTINIB [Suspect]
     Active Substance: ALECTINIB
     Indication: Non-small cell lung cancer
     Dosage: DOSE LAST STUDY DRUG ADMIN PRIOR AE AND SAE IS 600 MG, ON 23/APR/2022 START DATE OF MOST RECENT DOSE
     Route: 048
     Dates: start: 20220415
  2. CERITINIB [Concomitant]
     Active Substance: CERITINIB
     Dosage: 450 CAPSULES
     Dates: start: 20220509, end: 20220509
  3. CERITINIB [Concomitant]
     Active Substance: CERITINIB
     Dates: start: 20220427, end: 20230414
  4. ALECTINIB [Concomitant]
     Active Substance: ALECTINIB
     Indication: Lung neoplasm malignant
     Dates: start: 20220405

REACTIONS (2)
  - Dermatitis [Recovered/Resolved]
  - Hypoalbuminaemia [Recovered/Resolved]

NARRATIVE: CASE EVENT DATE: 20220427
